FAERS Safety Report 15755237 (Version 1)
Quarter: 2018Q4

REPORT INFORMATION
  Report Type: Spontaneous
  Country: US (occurrence: US)
  Receive Date: 20181221
  Receipt Date: 20181221
  Transmission Date: 20190205
  Serious: No
  Sender: FDA-Public Use
  Company Number: None

PATIENT
  Age: 72 Year
  Sex: Female
  Weight: 90 kg

DRUGS (18)
  1. PROTONIX [Concomitant]
     Active Substance: PANTOPRAZOLE SODIUM
  2. CALCIUM [Concomitant]
     Active Substance: CALCIUM
  3. CELEXA [Concomitant]
     Active Substance: CITALOPRAM HYDROBROMIDE
  4. ZANAFLEX [Concomitant]
     Active Substance: TIZANIDINE HYDROCHLORIDE
  5. BUTALBITAL-ACETAMINOPHEN-CAFFEINE (FIORICET, ESGIC) [Concomitant]
  6. CALCIUM CARBONATE (TUMS) [Concomitant]
  7. ENHANSA CURCUMIN SUPP [Concomitant]
  8. PYRIDOSTIGMINE (MESTINON) [Concomitant]
  9. DICLOFENAC SODIUM (VOLTAREN) [Concomitant]
  10. ALUMINUM HYDROX-MAGNESIUM CARB (GAVISCON) [Concomitant]
  11. TYLENOL [Concomitant]
     Active Substance: ACETAMINOPHEN
  12. PYRIDOSTIGMINE [Suspect]
     Active Substance: PYRIDOSTIGMINE
     Indication: DYSPHAGIA
     Dosage: ?          QUANTITY:1 TABLET(S);?
     Route: 048
     Dates: start: 20181022
  13. CALCIUM CITRATE/VITAMIN DE (CALCITRATE-VITAMIN D ORAL) [Concomitant]
  14. FLUOCINONIDE (LIDEX) [Concomitant]
  15. NORVASC [Concomitant]
     Active Substance: AMLODIPINE BESYLATE
  16. VALACYCLOVIR (VALTREX) [Concomitant]
  17. TUMS [Concomitant]
     Active Substance: CALCIUM CARBONATE
  18. ENHANSA [Concomitant]

REACTIONS (1)
  - Muscle spasms [None]

NARRATIVE: CASE EVENT DATE: 20181202
